FAERS Safety Report 9629619 (Version 3)
Quarter: 2013Q4

REPORT INFORMATION
  Report Type: Report from Study
  Country: US (occurrence: US)
  Receive Date: 20131017
  Receipt Date: 20131105
  Transmission Date: 20140711
  Serious: Yes (Hospitalization)
  Sender: FDA-Public Use
  Company Number: US-ACTELION-A-NJ2013-89624

PATIENT
  Age: 47 Year
  Sex: Female

DRUGS (3)
  1. VELETRI [Suspect]
     Indication: PULMONARY ARTERIAL HYPERTENSION
     Dosage: 24 NG/KG, PER MIN
     Route: 041
     Dates: start: 20110930
  2. ADCIRCA [Concomitant]
  3. COUMADIN [Concomitant]

REACTIONS (8)
  - Device related infection [Unknown]
  - Staphylococcus test positive [Unknown]
  - Staphylococcal infection [Unknown]
  - Catheter site infection [Unknown]
  - Catheter site pain [Unknown]
  - Catheter culture positive [Unknown]
  - Catheter removal [Unknown]
  - Catheter placement [Unknown]
